FAERS Safety Report 19040103 (Version 4)
Quarter: 2021Q2

REPORT INFORMATION
  Report Type: Report from Study
  Country: None (occurrence: US)
  Receive Date: 20210323
  Receipt Date: 20210519
  Transmission Date: 20210717
  Serious: Yes (Other)
  Sender: FDA-Public Use
  Company Number: US-ABBVIE-21K-163-3820459-00

PATIENT
  Sex: Male
  Weight: 83.99 kg

DRUGS (5)
  1. SULFASALAZINE. [Concomitant]
     Active Substance: SULFASALAZINE
     Indication: INFLAMMATION
  2. LISINOPRIL. [Concomitant]
     Active Substance: LISINOPRIL
     Indication: HYPERTENSION
  3. PFIZER?BIONTECH COVID?19 VACCINE [Suspect]
     Active Substance: TOZINAMERAN
     Dosage: PFIZER
     Route: 030
     Dates: start: 20210409, end: 20210409
  4. HUMIRA [Suspect]
     Active Substance: ADALIMUMAB
     Indication: RHEUMATOID ARTHRITIS
     Route: 058
  5. PFIZER?BIONTECH COVID?19 VACCINE [Suspect]
     Active Substance: TOZINAMERAN
     Indication: COVID-19 IMMUNISATION
     Dosage: PFIZER
     Route: 030
     Dates: start: 20210312, end: 20210312

REACTIONS (20)
  - Ligament sprain [Recovering/Resolving]
  - Balance disorder [Recovering/Resolving]
  - Loss of consciousness [Recovered/Resolved]
  - Visual impairment [Not Recovered/Not Resolved]
  - Contusion [Recovering/Resolving]
  - Illness [Recovered/Resolved]
  - Fluid intake reduced [Recovering/Resolving]
  - Condition aggravated [Recovering/Resolving]
  - Chills [Recovered/Resolved]
  - Vision blurred [Not Recovered/Not Resolved]
  - Hypophagia [Recovering/Resolving]
  - Limb injury [Unknown]
  - Injection site papule [Recovered/Resolved]
  - Unevaluable event [Recovering/Resolving]
  - Mobility decreased [Recovered/Resolved]
  - Rheumatoid arthritis [Recovering/Resolving]
  - Musculoskeletal stiffness [Unknown]
  - Localised infection [Recovering/Resolving]
  - Visual impairment [Not Recovered/Not Resolved]
  - Dizziness [Recovering/Resolving]

NARRATIVE: CASE EVENT DATE: 2020
